FAERS Safety Report 7145543-5 (Version None)
Quarter: 2010Q4

REPORT INFORMATION
  Report Type: 
  Country: None (occurrence: None)
  Receive Date: 20101208
  Receipt Date: 20101203
  Transmission Date: 20110411
  Serious: Yes (Other)
  Sender: FDA-Public Use
  Company Number: BR-ROCHE-746356

PATIENT
  Sex: Male
  Weight: 84 kg

DRUGS (4)
  1. RIVOTRIL [Suspect]
     Indication: INSOMNIA
     Route: 048
     Dates: start: 20100806
  2. RIVOTRIL [Suspect]
     Route: 048
  3. LOSARTAN [Concomitant]
     Indication: HYPERTENSION
  4. ALLOPURINOL [Concomitant]
     Dosage: DRUG REPORTED AS DICHLORHYDRATE ALLOPURINOL

REACTIONS (3)
  - DIZZINESS [None]
  - DRUG INEFFECTIVE [None]
  - PHOBIA [None]
